FAERS Safety Report 19074741 (Version 1)
Quarter: 2021Q1

REPORT INFORMATION
  Report Type: Spontaneous
  Country: US (occurrence: US)
  Receive Date: 20210330
  Receipt Date: 20210330
  Transmission Date: 20210420
  Serious: No
  Sender: FDA-Public Use
  Company Number: US-B.I. PHARMACEUTICALS,INC./RIDGEFIELD-2021-BI-092574

PATIENT
  Age: 58 Year
  Sex: Male

DRUGS (14)
  1. GLIPIZIDE. [Concomitant]
     Active Substance: GLIPIZIDE
     Indication: TYPE 2 DIABETES MELLITUS
     Dosage: 10 MG DAILY
     Route: 065
  2. TOPIRAMATE. [Concomitant]
     Active Substance: TOPIRAMATE
     Indication: NEUROPATHY PERIPHERAL
     Dosage: 100 MG TWICE DAILY
     Route: 065
  3. JAMP OMEPRAZOLE DR [Concomitant]
     Indication: GASTROOESOPHAGEAL REFLUX DISEASE
     Dosage: 40 MG DAILY
     Route: 065
  4. ALLOPURINOL. [Concomitant]
     Active Substance: ALLOPURINOL
     Indication: GOUT
     Dosage: 300 MG DAILY
     Route: 065
  5. ALBUTEROL [SALBUTAMOL] [Concomitant]
     Active Substance: ALBUTEROL
     Indication: PRODUCT USED FOR UNKNOWN INDICATION
     Dosage: AS NEEDED
     Route: 065
  6. METOPROLOL TARTRATE. [Concomitant]
     Active Substance: METOPROLOL TARTRATE
     Indication: HYPERTENSION
     Dosage: 12.5 MG TWICE DAILY
     Route: 065
  7. FLUTICASONE PROPIONATE. [Concomitant]
     Active Substance: FLUTICASONE PROPIONATE
     Indication: PRODUCT USED FOR UNKNOWN INDICATION
     Dosage: 1 SPRAY EACH NOSTRIL DAILY
     Route: 065
  8. TAMSULOSIN HCL [Concomitant]
     Active Substance: TAMSULOSIN HYDROCHLORIDE
     Indication: URINE FLOW DECREASED
     Dosage: 0.4 MG AT BEDTIME
     Route: 065
  9. REPAGLINIDE. [Concomitant]
     Active Substance: REPAGLINIDE
     Indication: TYPE 2 DIABETES MELLITUS
     Dosage: 2 MG TWICE DAILY
     Route: 065
  10. SPIRIVA RESPIMAT [Suspect]
     Active Substance: TIOTROPIUM BROMIDE
     Indication: CHRONIC OBSTRUCTIVE PULMONARY DISEASE
     Dosage: 2 PUFFS DAILY 2.5 MCG
     Route: 065
     Dates: end: 20210321
  11. FASENRA [Concomitant]
     Active Substance: BENRALIZUMAB
     Indication: ASTHMA
     Route: 065
  12. OXYCODONE AND ACETAMINOPHEN [Concomitant]
     Active Substance: ACETAMINOPHEN\OXYCODONE HYDROCHLORIDE
     Indication: PAIN
     Dosage: 3 TIMES DAILY
     Route: 065
  13. SYMBICORT [Concomitant]
     Active Substance: BUDESONIDE\FORMOTEROL FUMARATE DIHYDRATE
     Indication: PRODUCT USED FOR UNKNOWN INDICATION
     Dosage: 2 PUFFS TWICE DAILY
     Route: 065
  14. LISINOPRIL. [Concomitant]
     Active Substance: LISINOPRIL
     Indication: HYPERTENSION
     Dosage: 40 MG DAILY
     Route: 065

REACTIONS (6)
  - Oral discomfort [Not Recovered/Not Resolved]
  - Lip blister [Not Recovered/Not Resolved]
  - Therapy cessation [Unknown]
  - Burning sensation [Not Recovered/Not Resolved]
  - Lip swelling [Recovered/Resolved]
  - Lip disorder [Recovered/Resolved]

NARRATIVE: CASE EVENT DATE: 20210321
